FAERS Safety Report 13184881 (Version 3)
Quarter: 2017Q2

REPORT INFORMATION
  Report Type: Spontaneous
  Country: US (occurrence: US)
  Receive Date: 20170203
  Receipt Date: 20170620
  Transmission Date: 20170830
  Serious: No
  Sender: FDA-Public Use
  Company Number: US-GLAXOSMITHKLINE-US2017014807

PATIENT
  Sex: Female

DRUGS (1)
  1. ROPINIROLE TABLET [Suspect]
     Active Substance: ROPINIROLE
     Indication: RESTLESS LEGS SYNDROME
     Dosage: 1 MG, UNK
     Route: 048
     Dates: start: 2008

REACTIONS (4)
  - Drug ineffective [Recovered/Resolved]
  - Therapeutic response changed [Unknown]
  - Prescribed overdose [Unknown]
  - Product substitution issue [Unknown]

NARRATIVE: CASE EVENT DATE: 2008
